FAERS Safety Report 6711434-4 (Version None)
Quarter: 2010Q2

REPORT INFORMATION
  Report Type: 
  Country: None (occurrence: None)
  Receive Date: 20100505
  Receipt Date: 20100428
  Transmission Date: 20101027
  Serious: Yes (Other)
  Sender: FDA-Public Use
  Company Number: US-PFIZER INC-2010054512

PATIENT
  Sex: Male
  Weight: 76 kg

DRUGS (1)
  1. DOXYCYCLINE HYCLATE [Suspect]
     Indication: RASH MACULAR
     Dosage: UNK
     Route: 048
     Dates: start: 19960101, end: 19960101

REACTIONS (5)
  - DERMATITIS CONTACT [None]
  - DYSKINESIA [None]
  - EYE HAEMORRHAGE [None]
  - FEELING ABNORMAL [None]
  - THROAT TIGHTNESS [None]
